FAERS Safety Report 10510687 (Version 1)
Quarter: 2014Q3

REPORT INFORMATION
  Report Type: Spontaneous
  Country: US (occurrence: None)
  Receive Date: 20140915
  Receipt Date: 20140915
  Transmission Date: 20150326
  Serious: Yes (Hospitalization, Other)
  Sender: FDA-Public Use
  Company Number: 2013-US-002496

PATIENT
  Age: 16 Year
  Sex: Male
  Weight: 107.9 kg

DRUGS (4)
  1. ABILIFY (ARIPAPRAZOLE) [Concomitant]
  2. RITALIN (METHYLPHENIDATE HYDROCHLORIDE) [Suspect]
     Active Substance: METHYLPHENIDATE HYDROCHLORIDE
     Indication: NARCOLEPSY
     Route: 048
     Dates: start: 20130924, end: 20130926
  3. XYREM [Suspect]
     Active Substance: SODIUM OXYBATE
     Indication: CATAPLEXY
     Route: 048
     Dates: start: 201207, end: 2012
  4. XYREM [Suspect]
     Active Substance: SODIUM OXYBATE
     Indication: NARCOLEPSY
     Route: 048
     Dates: start: 201207, end: 2012

REACTIONS (4)
  - Hallucination, auditory [None]
  - Suicide attempt [None]
  - Delusion [None]
  - Hallucination, visual [None]

NARRATIVE: CASE EVENT DATE: 20130916
